FAERS Safety Report 17432919 (Version 2)
Quarter: 2020Q1

REPORT INFORMATION
  Report Type: Report from Study
  Country: RO (occurrence: RO)
  Receive Date: 20200219
  Receipt Date: 20200305
  Transmission Date: 20200409
  Serious: Yes (Other)
  Sender: FDA-Public Use
  Company Number: RO-ROCHE-2545469

PATIENT
  Sex: Male
  Weight: 95 kg

DRUGS (2)
  1. AVASTIN [Suspect]
     Active Substance: BEVACIZUMAB
     Indication: GLIOBLASTOMA
     Route: 042
  2. IRINOTECAN [Concomitant]
     Active Substance: IRINOTECAN

REACTIONS (4)
  - Tumour marker increased [Unknown]
  - Brain neoplasm [Unknown]
  - Product use in unapproved indication [Unknown]
  - Off label use [Unknown]
